FAERS Safety Report 8135644-7 (Version None)
Quarter: 2012Q1

REPORT INFORMATION
  Report Type: 
  Country: None (occurrence: None)
  Receive Date: 20120214
  Receipt Date: 20120208
  Transmission Date: 20120608
  Serious: Yes (Death)
  Sender: FDA-Public Use
  Company Number: PHEH2012US003511

PATIENT
  Sex: Male

DRUGS (2)
  1. EXJADE [Suspect]
     Dosage: 1625 MG, DAILY
     Route: 048
  2. EXJADE [Suspect]
     Indication: HAEMOCHROMATOSIS
     Dosage: 1625 MG, DAILY
     Route: 048

REACTIONS (1)
  - SUBDURAL HAEMATOMA [None]
